FAERS Safety Report 14179064 (Version 1)
Quarter: 2017Q4

REPORT INFORMATION
  Report Type: Spontaneous
  Country: US (occurrence: US)
  Receive Date: 20171110
  Receipt Date: 20171110
  Transmission Date: 20180321
  Serious: Yes (Hospitalization, Other)
  Sender: FDA-Public Use
  Company Number: US-TEVA-823634USA

PATIENT
  Sex: Female

DRUGS (1)
  1. CISPLATIN. [Suspect]
     Active Substance: CISPLATIN
     Indication: LUNG NEOPLASM MALIGNANT
     Dates: start: 20170926

REACTIONS (16)
  - Fatigue [Unknown]
  - Asthenia [Unknown]
  - Dysphagia [Unknown]
  - Chest pain [Recovered/Resolved]
  - Dyspnoea [Recovered/Resolved]
  - Vision blurred [Unknown]
  - Urinary retention [Recovered/Resolved]
  - Dry eye [Unknown]
  - Anxiety [Recovered/Resolved]
  - Dyspepsia [Unknown]
  - Vomiting [Unknown]
  - Pollakiuria [Recovered/Resolved]
  - Choking [Unknown]
  - Nausea [Unknown]
  - Decreased appetite [Unknown]
  - Eye disorder [Unknown]

NARRATIVE: CASE EVENT DATE: 20170926
